FAERS Safety Report 9768971 (Version 1)
Quarter: 2013Q3

REPORT INFORMATION
  Report Type: Spontaneous
  Country: RO (occurrence: None)
  Receive Date: 20130828
  Receipt Date: 20130828
  Transmission Date: 20140515
  Serious: Yes (Death, Hospitalization)
  Sender: FDA-Public Use
  Company Number: ENTC2013-0262

PATIENT
  Age: 68 Year
  Sex: Male

DRUGS (6)
  1. STALEVO (LEVODOPA, CARBIDOPA, ENTACAPONE) [Suspect]
     Indication: PARKINSON^S DISEASE
     Dosage: 600 MG (150 MG,4 IN 1 D)
     Route: 048
     Dates: start: 201212
  2. MADOPAR [Concomitant]
  3. NEUPRO [Concomitant]
  4. VIREGYT K [Concomitant]
  5. RIVOTRIL [Concomitant]
  6. PRESTARIUM [Concomitant]

REACTIONS (6)
  - Gastroenteritis [None]
  - Subileus [None]
  - Intestinal ischaemia [None]
  - Blood alkaline phosphatase increased [None]
  - Blood urea increased [None]
  - Haemoglobin decreased [None]
